FAERS Safety Report 10056955 (Version 2)
Quarter: 2014Q2

REPORT INFORMATION
  Report Type: Spontaneous
  Country: US (occurrence: US)
  Receive Date: 20140403
  Receipt Date: 20140521
  Transmission Date: 20141212
  Serious: Yes (Other)
  Sender: FDA-Public Use
  Company Number: US-US-EMD SERONO, INC.-7279561

PATIENT
  Sex: Female
  Weight: 68 kg

DRUGS (5)
  1. REBIF [Suspect]
     Indication: RELAPSING-REMITTING MULTIPLE SCLEROSIS
     Route: 058
     Dates: start: 2004
  2. CRESTOR                            /01588601/ [Concomitant]
     Indication: PRODUCT USED FOR UNKNOWN INDICATION
  3. SYNTHROID [Concomitant]
     Indication: THYROID DISORDER
  4. CALCIUM WITH VITAMIN D             /01233101/ [Concomitant]
     Indication: PRODUCT USED FOR UNKNOWN INDICATION
     Dosage: CALCIUM 500 MG
  5. FLOVENT [Concomitant]
     Indication: ASTHMA
     Dosage: 220 MICROGRAM PER ACTUATION

REACTIONS (4)
  - Benign breast neoplasm [Recovered/Resolved]
  - Diabetes mellitus [Recovering/Resolving]
  - Sinusitis [Recovered/Resolved]
  - Injection site erythema [Not Recovered/Not Resolved]
